FAERS Safety Report 6875816-2 (Version None)
Quarter: 2010Q3

REPORT INFORMATION
  Report Type: 
  Country: None (occurrence: None)
  Receive Date: 20100727
  Receipt Date: 20100719
  Transmission Date: 20110219
  Serious: Yes (Hospitalization)
  Sender: FDA-Public Use
  Company Number: CA-ASTRAZENECA-2010SE33674

PATIENT
  Age: 34 Year
  Sex: Female
  Weight: 58.5 kg

DRUGS (12)
  1. NEXIUM [Suspect]
     Route: 048
  2. ACETAMINOPHEN [Concomitant]
     Route: 065
  3. BENZYDAMINE [Concomitant]
     Route: 065
  4. CALCIUM CARBONATE [Concomitant]
     Route: 065
  5. DIPHENHYDRAMINE [Concomitant]
     Route: 065
  6. DOCUSATE [Concomitant]
     Route: 065
  7. MORPHINE [Concomitant]
     Route: 042
  8. MORPHINE [Concomitant]
     Route: 058
  9. MUCOSITIS MOUTHWASH [Concomitant]
     Route: 048
  10. OXAZEPAM [Concomitant]
     Route: 065
  11. PROCHLORPERAZINE [Concomitant]
     Route: 065
  12. SENOKOT [Concomitant]
     Route: 065

REACTIONS (7)
  - ALANINE AMINOTRANSFERASE INCREASED [None]
  - ASPARTATE AMINOTRANSFERASE INCREASED [None]
  - BLOOD ALKALINE PHOSPHATASE INCREASED [None]
  - BLOOD BILIRUBIN INCREASED [None]
  - INTERNATIONAL NORMALISED RATIO INCREASED [None]
  - JAUNDICE [None]
  - LIVER FUNCTION TEST ABNORMAL [None]
